FAERS Safety Report 9422059 (Version 1)
Quarter: 2013Q3

REPORT INFORMATION
  Report Type: Spontaneous
  Country: US (occurrence: None)
  Receive Date: 20130725
  Receipt Date: 20130725
  Transmission Date: 20140515
  Serious: No
  Sender: FDA-Public Use
  Company Number: None

PATIENT
  Sex: 0

DRUGS (1)
  1. IPRATROPIUM BROMIDE/ALBUTEROL SULFATE [Suspect]

REACTIONS (2)
  - Drug ineffective [None]
  - Product substitution issue [None]
